FAERS Safety Report 10086665 (Version 1)
Quarter: 2014Q2

REPORT INFORMATION
  Report Type: Spontaneous
  Country: US (occurrence: None)
  Receive Date: 20140417
  Receipt Date: 20140417
  Transmission Date: 20141212
  Serious: Yes (Life-Threatening, Hospitalization)
  Sender: FDA-Public Use
  Company Number: None

PATIENT
  Age: 15 Year
  Sex: Male
  Weight: 66 kg

DRUGS (4)
  1. ZOSYN 3.375 GM PFIZER [Suspect]
     Indication: WOUND
     Route: 042
     Dates: start: 20140409, end: 20140411
  2. VANCOMYCIN [Suspect]
     Indication: WOUND
     Dosage: 1 G Q6H INTRAVENOUS
     Route: 042
     Dates: start: 20140409, end: 20140410
  3. VANCOMYCIN [Suspect]
     Indication: INFECTION
     Dosage: 1 G Q6H INTRAVENOUS
     Route: 042
     Dates: start: 20140409, end: 20140410
  4. CIPROFLOXACIN [Concomitant]

REACTIONS (4)
  - Blood creatinine increased [None]
  - Laboratory test abnormal [None]
  - Protein urine present [None]
  - Blood bilirubin increased [None]
